FAERS Safety Report 21955633 (Version 1)
Quarter: 2023Q1

REPORT INFORMATION
  Report Type: Spontaneous
  Country: US (occurrence: None)
  Receive Date: 20230206
  Receipt Date: 20230206
  Transmission Date: 20230417
  Serious: No
  Sender: FDA-Public Use
  Company Number: 2023A011327

PATIENT
  Age: 16393 Day
  Sex: Male
  Weight: 104.3 kg

DRUGS (1)
  1. FASENRA [Suspect]
     Active Substance: BENRALIZUMAB
     Indication: Asthma
     Route: 058
     Dates: start: 20210129

REACTIONS (1)
  - Streptococcal infection [Recovering/Resolving]

NARRATIVE: CASE EVENT DATE: 20230106
